FAERS Safety Report 25307357 (Version 2)
Quarter: 2025Q2

REPORT INFORMATION
  Report Type: Spontaneous
  Country: IT (occurrence: IT)
  Receive Date: 20250513
  Receipt Date: 20250522
  Transmission Date: 20250717
  Serious: Yes (Other)
  Sender: MDD OPERATIONS
  Company Number: IT-ABBVIE-6247126

PATIENT
  Age: 67 Year
  Sex: Male

DRUGS (8)
  1. SAFINAMIDE [Suspect]
     Active Substance: SAFINAMIDE
     Indication: Product used for unknown indication
  2. FOSCARBIDOPA\FOSLEVODOPA [Suspect]
     Active Substance: FOSCARBIDOPA\FOSLEVODOPA
     Indication: Parkinson^s disease
     Route: 058
  3. OPICAPONE [Suspect]
     Active Substance: OPICAPONE
     Indication: Product used for unknown indication
  4. RASAGILINE [Concomitant]
     Active Substance: RASAGILINE
     Indication: Parkinson^s disease
  5. BENSERAZIDE HYDROCHLORIDE [Concomitant]
     Active Substance: BENSERAZIDE HYDROCHLORIDE
     Indication: Product used for unknown indication
     Dosage: IR L-DOPA/BENSERAZIDE 100/25 MG (1+1/2 CP X4/DAY)
  6. BENSERAZIDE HYDROCHLORIDE [Concomitant]
     Active Substance: BENSERAZIDE HYDROCHLORIDE
  7. NEUPRO [Concomitant]
     Active Substance: ROTIGOTINE
     Indication: Somnolence
  8. NEUPRO [Concomitant]
     Active Substance: ROTIGOTINE
     Indication: Dyskinesia

REACTIONS (4)
  - Cellulitis [Recovering/Resolving]
  - Catheter site erythema [Recovering/Resolving]
  - Adverse drug reaction [Unknown]
  - Contraindicated product administered [Unknown]
